FAERS Safety Report 6506692 (Version 6)
Quarter: 2025Q3

REPORT INFORMATION
  Report Type: Spontaneous
  Country: GB (occurrence: GB)
  Receive Date: 20071217
  Receipt Date: 20250827
  Transmission Date: 20251021
  Serious: Yes (Death)
  Sender: MERCK SHARP & DOHME LLC
  Company Number: GB-MERCK-0712GBR00045

PATIENT
  Age: 14 Year
  Sex: Male
  Weight: 75 kg

DRUGS (3)
  1. CANCIDAS [Suspect]
     Active Substance: CASPOFUNGIN ACETATE
     Indication: Antifungal treatment
     Dosage: DOSE DESCRIPTION : 70 MG, QD?DAILY DOSE : 70 MILLIGRAM
     Route: 041
     Dates: start: 20041201, end: 20041216
  2. VORICONAZOLE [Suspect]
     Active Substance: VORICONAZOLE
     Indication: Antifungal treatment
     Route: 042
     Dates: start: 20041201, end: 20041201
  3. VORICONAZOLE [Suspect]
     Active Substance: VORICONAZOLE
     Indication: Antifungal treatment
     Dosage: DOSE DESCRIPTION : 275 MG, BID?DAILY DOSE : 550 MILLIGRAM
     Route: 042
     Dates: start: 20041202, end: 20041216

REACTIONS (3)
  - Multiple organ dysfunction syndrome [Fatal]
  - Infection [Unknown]
  - Drug ineffective [Unknown]

NARRATIVE: CASE EVENT DATE: 20041201
